FAERS Safety Report 20641994 (Version 1)
Quarter: 2022Q1

REPORT INFORMATION
  Report Type: Spontaneous
  Country: US (occurrence: US)
  Receive Date: 20220328
  Receipt Date: 20220328
  Transmission Date: 20220423
  Serious: No
  Sender: FDA-Public Use
  Company Number: ALC2021US002794

PATIENT

DRUGS (1)
  1. PATADAY ONCE DAILY RELIEF [Suspect]
     Active Substance: OLOPATADINE HYDROCHLORIDE
     Indication: Eye pruritus
     Route: 065

REACTIONS (5)
  - Eye swelling [Unknown]
  - Ocular discomfort [Unknown]
  - Eye pruritus [Unknown]
  - Ocular hyperaemia [Unknown]
  - Eye discharge [Unknown]
